FAERS Safety Report 13471302 (Version 1)
Quarter: 2017Q2

REPORT INFORMATION
  Report Type: Spontaneous
  Country: JP (occurrence: JP)
  Receive Date: 20170424
  Receipt Date: 20170424
  Transmission Date: 20170830
  Serious: Yes (Other)
  Sender: FDA-Public Use
  Company Number: JP-ELI_LILLY_AND_COMPANY-JP201704005119

PATIENT
  Age: 79 Year
  Sex: Male
  Weight: 59 kg

DRUGS (6)
  1. AMITRIPTYLINE                      /00002202/ [Interacting]
     Active Substance: AMITRIPTYLINE
     Dosage: 25 MG, EACH EVENING
     Route: 065
  2. AMITRIPTYLINE                      /00002202/ [Interacting]
     Active Substance: AMITRIPTYLINE
     Indication: TRIGEMINAL NEURALGIA
     Dosage: 10 MG, EACH EVENING
     Route: 065
  3. ACETAMINOPHEN. [Concomitant]
     Active Substance: ACETAMINOPHEN
     Indication: TRIGEMINAL NEURALGIA
     Dosage: UNK, TID
  4. AMITRIPTYLINE                      /00002202/ [Interacting]
     Active Substance: AMITRIPTYLINE
     Dosage: 10 MG, QD
     Route: 065
  5. CYMBALTA [Interacting]
     Active Substance: DULOXETINE HYDROCHLORIDE
     Dosage: 20 MG, BID
     Route: 048
  6. CYMBALTA [Suspect]
     Active Substance: DULOXETINE HYDROCHLORIDE
     Indication: TRIGEMINAL NEURALGIA
     Dosage: 20 MG, EACH MORNING
     Route: 048

REACTIONS (5)
  - Postrenal failure [Unknown]
  - Off label use [Recovered/Resolved]
  - Drug interaction [Unknown]
  - Renal function test abnormal [Recovering/Resolving]
  - Dysuria [Unknown]
